FAERS Safety Report 9332909 (Version 1)
Quarter: 2013Q2

REPORT INFORMATION
  Report Type: Spontaneous
  Country: GB (occurrence: GB)
  Receive Date: 20130606
  Receipt Date: 20130606
  Transmission Date: 20140414
  Serious: Yes (Other)
  Sender: FDA-Public Use
  Company Number: GB-TEVA-409910ISR

PATIENT
  Age: 21 Year
  Sex: Female
  Weight: 85 kg

DRUGS (10)
  1. ETOPOSIDE [Suspect]
     Indication: BONE MARROW CONDITIONING REGIMEN
     Route: 042
     Dates: start: 20130427, end: 20130427
  2. PALIFERMIN [Concomitant]
  3. RANITIDINE [Concomitant]
  4. ONDANSETRON [Concomitant]
  5. URSODEOXYCHOLIC ACID [Concomitant]
  6. ITRACONAZOLE [Concomitant]
  7. ACICLOVIR [Concomitant]
  8. ALLOPURINOL [Concomitant]
  9. CYCLIZINE [Concomitant]
  10. OESTRADIOL [Concomitant]

REACTIONS (2)
  - Renal failure acute [Recovering/Resolving]
  - Blood electrolytes decreased [Unknown]
